FAERS Safety Report 4771256-0 (Version None)
Quarter: 2005Q3

REPORT INFORMATION
  Report Type: 
  Country: None (occurrence: None)
  Receive Date: 20050914
  Receipt Date: 20050830
  Transmission Date: 20060218
  Serious: Yes (Hospitalization, Other)
  Sender: FDA-Public Use
  Company Number: 2005BI014864

PATIENT
  Sex: Female

DRUGS (14)
  1. AVONEX [Suspect]
     Indication: MULTIPLE SCLEROSIS
     Dosage: 15 UG;QW;IM
     Route: 030
     Dates: start: 20050328, end: 20050401
  2. AVONEX [Suspect]
     Indication: MULTIPLE SCLEROSIS
     Dosage: 30 UG;QW;IM
     Route: 030
     Dates: start: 20050401, end: 20050803
  3. MOTRIN [Concomitant]
  4. BENADRYL [Concomitant]
  5. ENALAPRIL [Concomitant]
  6. ESTRADIOL [Concomitant]
  7. MSM [Concomitant]
  8. ASCORBIC ACID [Concomitant]
  9. FLAX SEED OIL [Concomitant]
  10. LYSINE [Concomitant]
  11. CRANBERRY [Concomitant]
  12. CALCIUM GLUCONATE [Concomitant]
  13. VITAMIN B COMPLEX CAP [Concomitant]
  14. MVI (MULTIVITAMINS) [Concomitant]

REACTIONS (2)
  - ARTERITIS [None]
  - MYOCARDIAL INFARCTION [None]
